FAERS Safety Report 22149545 (Version 1)
Quarter: 2023Q1

REPORT INFORMATION
  Report Type: Other
  Country: US (occurrence: US)
  Receive Date: 20230329
  Receipt Date: 20230329
  Transmission Date: 20230418
  Serious: Yes (Hospitalization)
  Sender: FDA-Public Use
  Company Number: US-DECIPHERA PHARMACEUTICALS LLC-2023US000260

PATIENT
  Sex: Female

DRUGS (2)
  1. QINLOCK [Suspect]
     Active Substance: RIPRETINIB
     Indication: Gastrointestinal stromal tumour
     Dosage: 50 MILLIGRAM (50 MG X 7 DAYS, 100 MG X 7 DAYS AND THEN 150 MG FOR 14 DAYS)
     Route: 048
     Dates: start: 20230307
  2. QINLOCK [Suspect]
     Active Substance: RIPRETINIB
     Dosage: 100 MILLIGRAM (50 MG X 7 DAYS, 100 MG X 7 DAYS AND THEN 150 MG FOR 14 DAYS)
     Route: 048
     Dates: start: 20230314

REACTIONS (3)
  - Hospitalisation [Not Recovered/Not Resolved]
  - Underdose [Unknown]
  - Inappropriate schedule of product administration [Unknown]

NARRATIVE: CASE EVENT DATE: 20230301
